FAERS Safety Report 8552286-X (Version None)
Quarter: 2012Q3

REPORT INFORMATION
  Report Type: 
  Country: None (occurrence: None)
  Receive Date: 20120718
  Receipt Date: 20120706
  Transmission Date: 20120928
  Serious: Yes (Hospitalization)
  Sender: FDA-Public Use
  Company Number: 1343590

PATIENT
  Age: 35 Year
  Sex: Female

DRUGS (8)
  1. SODIUM CHLORIDE [Concomitant]
  2. PACLITAXEL [Suspect]
     Indication: CERVIX CARCINOMA
     Dosage: 155 MG/M**2, OVER 3 HOURS
     Route: 041
  3. CISPLATIN [Suspect]
     Indication: CERVIX CARCINOMA
     Dosage: 40 MG, WEEKLY FOR 5 DOSES
     Route: 041
  4. PHENERGAN [Concomitant]
  5. RANITIDINE [Concomitant]
  6. CARBOPLATIN [Suspect]
     Indication: CERVIX CARCINOMA
     Dosage: AUC5, IN ONE HOUR, INTRAVENOUS (NOT OTHERWISE SPECIFIED)
     Route: 042
  7. SEROTONIN (5HT3) ANTAGONISTS [Concomitant]
  8. DEXAMETHASONE [Concomitant]

REACTIONS (6)
  - HYPOKALAEMIA [None]
  - ABDOMINAL PAIN [None]
  - NAUSEA [None]
  - PYREXIA [None]
  - DIARRHOEA [None]
  - VOMITING [None]
